FAERS Safety Report 15402278 (Version 1)
Quarter: 2018Q4

REPORT INFORMATION
  Report Type: Spontaneous
  Country: CZ (occurrence: CZ)
  Receive Date: 20180919
  Receipt Date: 20180919
  Transmission Date: 20190204
  Serious: Yes (Hospitalization, Other)
  Sender: FDA-Public Use
  Company Number: CZ-ACCORD-072228

PATIENT
  Age: 83 Year
  Sex: Female

DRUGS (15)
  1. WARFARIN [Suspect]
     Active Substance: WARFARIN
     Dosage: STRENGTH: 3 MG; 0-1-0,
     Route: 048
  2. ITOPRIDE [Suspect]
     Active Substance: ITOPRIDE
     Indication: PRODUCT USED FOR UNKNOWN INDICATION
     Dosage: 1-0-1
     Route: 065
  3. FRAXIPARINE [Suspect]
     Active Substance: NADROPARIN CALCIUM
     Indication: PRODUCT USED FOR UNKNOWN INDICATION
     Dosage: 0.6
     Route: 058
  4. HYDROCHLOROTHIAZIDE. [Suspect]
     Active Substance: HYDROCHLOROTHIAZIDE
     Indication: PRODUCT USED FOR UNKNOWN INDICATION
     Route: 065
  5. OXYCODONE [Suspect]
     Active Substance: OXYCODONE
     Indication: PRODUCT USED FOR UNKNOWN INDICATION
     Dosage: STRENGTH: 60 MG;
     Route: 048
  6. CITALOPRAM [Suspect]
     Active Substance: CITALOPRAM HYDROBROMIDE
     Indication: PRODUCT USED FOR UNKNOWN INDICATION
     Dosage: STRENGTH: 10 MG; 1-0-0
     Route: 048
     Dates: start: 201709
  7. CALCICHEW D3 [Suspect]
     Active Substance: CALCIUM\CHOLECALCIFEROL
     Indication: PRODUCT USED FOR UNKNOWN INDICATION
     Dosage: 0-1-0
     Route: 048
  8. VASOCARDIN [Suspect]
     Active Substance: METOPROLOL
     Indication: PRODUCT USED FOR UNKNOWN INDICATION
     Dosage: STRENGTH: 200 MG;1/2-0-0
     Route: 048
  9. INDAPAMIDE/INDAPAMIDE HEMIHYDRATE [Suspect]
     Active Substance: INDAPAMIDE
     Indication: PRODUCT USED FOR UNKNOWN INDICATION
  10. APO-PANTOPRAZOLE [Suspect]
     Active Substance: PANTOPRAZOLE SODIUM
     Indication: PRODUCT USED FOR UNKNOWN INDICATION
     Dosage: STRENGTH: 40 MG; 0-0-1
     Route: 065
  11. TRITACE [Suspect]
     Active Substance: RAMIPRIL
     Indication: PRODUCT USED FOR UNKNOWN INDICATION
     Dosage: STRENGTH: 10 MG; 1-0-0
     Route: 065
  12. TENAXUM [Suspect]
     Active Substance: RILMENIDINE
     Indication: PRODUCT USED FOR UNKNOWN INDICATION
     Dosage: 1-0-1
     Route: 065
  13. WARFARIN [Suspect]
     Active Substance: WARFARIN
     Indication: PRODUCT USED FOR UNKNOWN INDICATION
     Dosage: STRENGTH: 5 MG; 0-1-0
     Route: 048
     Dates: start: 1996
  14. NOLPAZA [Suspect]
     Active Substance: PANTOPRAZOLE SODIUM
     Indication: PRODUCT USED FOR UNKNOWN INDICATION
     Dosage: STRENGTH: 20 MG; 1-0-0
     Route: 048
  15. GODASAL [Suspect]
     Active Substance: ASPIRIN\GLYCINE
     Indication: PRODUCT USED FOR UNKNOWN INDICATION
     Dosage: STRENGTH: 100 MG; 0-1/2-0
     Route: 048

REACTIONS (24)
  - Renal failure [Recovering/Resolving]
  - Urinary tract infection [Recovering/Resolving]
  - Hyponatraemia [Recovering/Resolving]
  - Drug level above therapeutic [Recovering/Resolving]
  - Hypertension [Recovering/Resolving]
  - Anaemia of chronic disease [Recovering/Resolving]
  - Constipation [Recovering/Resolving]
  - Pain [Recovering/Resolving]
  - Anal fissure [Recovering/Resolving]
  - Confusional state [Recovered/Resolved]
  - Thrombocytosis [Recovering/Resolving]
  - Hypochloraemia [Recovering/Resolving]
  - Psychomotor retardation [Recovering/Resolving]
  - Asthenia [Recovering/Resolving]
  - Intestinal haemorrhage [Recovering/Resolving]
  - Urinary retention [Recovering/Resolving]
  - Walking disability [Recovering/Resolving]
  - Somnolence [Recovering/Resolving]
  - Dehydration [Recovering/Resolving]
  - International normalised ratio increased [Recovering/Resolving]
  - Fall [Unknown]
  - Drug abuse [Unknown]
  - Oedema peripheral [Recovered/Resolved]
  - Haematoma [Recovering/Resolving]
